FAERS Safety Report 14286774 (Version 1)
Quarter: 2017Q4

REPORT INFORMATION
  Report Type: Spontaneous
  Country: US (occurrence: US)
  Receive Date: 20171214
  Receipt Date: 20171214
  Transmission Date: 20180321
  Serious: Yes (Other)
  Sender: FDA-Public Use
  Company Number: US-AMGEN-USASP2017184477

PATIENT
  Sex: Female

DRUGS (2)
  1. ENBREL [Suspect]
     Active Substance: ETANERCEPT
     Dosage: UNK UNK, Q2WK
     Route: 065
     Dates: end: 2017
  2. ENBREL [Suspect]
     Active Substance: ETANERCEPT
     Indication: RHEUMATOID ARTHRITIS
     Dosage: UNK, EVERY 10 DAYS
     Route: 065
     Dates: start: 2014

REACTIONS (4)
  - Intentional product misuse [Unknown]
  - Sunburn [Unknown]
  - Rheumatoid arthritis [Unknown]
  - Cataract operation [Unknown]

NARRATIVE: CASE EVENT DATE: 2017
